FAERS Safety Report 20053940 (Version 1)
Quarter: 2021Q4

REPORT INFORMATION
  Report Type: Spontaneous
  Country: US (occurrence: None)
  Receive Date: 20211110
  Receipt Date: 20211110
  Transmission Date: 20220304
  Serious: No
  Sender: FDA-Public Use
  Company Number: None

PATIENT
  Age: 37 Year
  Sex: Female
  Weight: 87.3 kg

DRUGS (1)
  1. CASIRIVIMAB\IMDEVIMAB [Suspect]
     Active Substance: CASIRIVIMAB\IMDEVIMAB
     Dates: start: 20211108

REACTIONS (6)
  - Nausea [None]
  - Vomiting [None]
  - Asthenia [None]
  - Dizziness [None]
  - Headache [None]
  - Parosmia [None]

NARRATIVE: CASE EVENT DATE: 20211108
